FAERS Safety Report 22212778 (Version 1)
Quarter: 2023Q2

REPORT INFORMATION
  Report Type: Spontaneous
  Country: US (occurrence: US)
  Receive Date: 20230414
  Receipt Date: 20230414
  Transmission Date: 20230721
  Serious: Yes (Hospitalization, Disabling)
  Sender: FDA-Public Use
  Company Number: US-JNJFOC-20230429013

PATIENT
  Age: 62 Year
  Sex: Male

DRUGS (1)
  1. INVOKANA [Suspect]
     Active Substance: CANAGLIFLOZIN
     Indication: Product used for unknown indication
     Route: 048

REACTIONS (4)
  - Necrosis [Recovering/Resolving]
  - Peripheral arterial occlusive disease [Recovering/Resolving]
  - Cellulitis [Recovering/Resolving]
  - Leg amputation [Recovering/Resolving]

NARRATIVE: CASE EVENT DATE: 20090714
